FAERS Safety Report 9904367 (Version 2)
Quarter: 2014Q1

REPORT INFORMATION
  Report Type: Not Available
  Country: US (occurrence: US)
  Receive Date: 20140218
  Receipt Date: 20140218
  Transmission Date: 20141002
  Serious: Yes (Hospitalization)
  Sender: FDA-Public Use
  Company Number: US-VIROPHARMA INCORPORATED-20131219CINRY5552

PATIENT
  Age: 49 Year
  Sex: Female
  Weight: 82.17 kg

DRUGS (3)
  1. CINRYZE (C1 ESTERASE INHIBITOR (HUMAN)) [Suspect]
     Indication: HEREDITARY ANGIOEDEMA
     Route: 042
     Dates: start: 201109
  2. CINRYZE (C1 ESTERASE INHIBITOR (HUMAN)) [Suspect]
     Indication: PROPHYLAXIS
  3. FIRAZYR [Concomitant]
     Indication: HEREDITARY ANGIOEDEMA
     Route: 065

REACTIONS (3)
  - Hysterectomy [Recovered/Resolved]
  - Dysfunctional uterine bleeding [Recovered/Resolved]
  - Hereditary angioedema [Recovered/Resolved]
